FAERS Safety Report 17711216 (Version 2)
Quarter: 2021Q4

REPORT INFORMATION
  Report Type: Spontaneous
  Country: CH (occurrence: CH)
  Receive Date: 20200427
  Receipt Date: 20211123
  Transmission Date: 20220303
  Serious: Yes (Other)
  Sender: FDA-Public Use
  Company Number: None

PATIENT
  Age: 28 Year
  Sex: Female

DRUGS (13)
  1. ZOFRAN [Suspect]
     Active Substance: ONDANSETRON HYDROCHLORIDE
     Indication: Product used for unknown indication
     Dosage: 4 MG, BID
     Route: 048
     Dates: start: 20200403, end: 20200404
  2. ZOFRAN [Suspect]
     Active Substance: ONDANSETRON HYDROCHLORIDE
     Dosage: 4 MG, IN TOTAL
     Route: 042
     Dates: start: 20200404, end: 20200404
  3. NEXIUM [Suspect]
     Active Substance: ESOMEPRAZOLE MAGNESIUM
     Indication: Product used for unknown indication
     Dosage: 80 MG, QD
     Route: 048
     Dates: start: 20200401, end: 20200404
  4. NEXIUM [Suspect]
     Active Substance: ESOMEPRAZOLE MAGNESIUM
     Dosage: 40 MG, QD
     Route: 042
     Dates: start: 20200404, end: 20200405
  5. PRIMPERAN [Suspect]
     Active Substance: METOCLOPRAMIDE HYDROCHLORIDE
     Indication: Nausea
     Dosage: UNK, QD
     Route: 030
     Dates: start: 20200401, end: 20200404
  6. PRIMPERAN [Suspect]
     Active Substance: METOCLOPRAMIDE HYDROCHLORIDE
     Indication: Vomiting
     Dosage: UNK, QD
     Route: 048
     Dates: start: 20200401, end: 20200404
  7. PRIMPERAN [Suspect]
     Active Substance: METOCLOPRAMIDE HYDROCHLORIDE
     Dosage: 10 MG, IN TOTAL
     Route: 042
     Dates: start: 20200404, end: 20200404
  8. METOCLOPRAMIDE\POLIDOCANOL [Suspect]
     Active Substance: METOCLOPRAMIDE\POLIDOCANOL
     Indication: Product used for unknown indication
     Dosage: 10 MG, IN TOTAL
     Route: 042
     Dates: start: 20200404, end: 20200404
  9. ACETAMINOPHEN [Concomitant]
     Active Substance: ACETAMINOPHEN
     Indication: Pyrexia
     Dosage: 3 G
     Route: 048
     Dates: start: 20200322, end: 20200329
  10. ACETAMINOPHEN [Concomitant]
     Active Substance: ACETAMINOPHEN
     Indication: Rhinorrhoea
     Dosage: 1 G, BID
     Route: 048
     Dates: start: 20200405, end: 20200405
  11. BIPERIDEN LACTATE [Concomitant]
     Active Substance: BIPERIDEN LACTATE
     Indication: Product used for unknown indication
     Dosage: 5 MG, QD
     Route: 042
     Dates: start: 20200404, end: 20200405
  12. DIAZEPAM [Concomitant]
     Active Substance: DIAZEPAM
     Indication: Product used for unknown indication
     Dosage: 2 MG, BID
     Route: 042
     Dates: start: 20200405, end: 20200405
  13. DESOREN [Concomitant]
     Indication: Product used for unknown indication
     Dosage: 0.02 MG, QD
     Route: 048

REACTIONS (3)
  - Drug-induced liver injury [Recovered/Resolved with Sequelae]
  - Hepatocellular injury [Recovered/Resolved]
  - Torticollis [Recovered/Resolved]

NARRATIVE: CASE EVENT DATE: 20200404
